FAERS Safety Report 16766958 (Version 1)
Quarter: 2019Q3

REPORT INFORMATION
  Report Type: Spontaneous
  Country: US (occurrence: US)
  Receive Date: 20190903
  Receipt Date: 20190903
  Transmission Date: 20191005
  Serious: No
  Sender: FDA-Public Use
  Company Number: US-SUNOVION-2019SUN003486

PATIENT
  Sex: Female
  Weight: 104.31 kg

DRUGS (7)
  1. SUCRALFATE. [Concomitant]
     Active Substance: SUCRALFATE
     Dosage: 1 G, AS NECESSARY
     Route: 048
  2. LYSINE [Concomitant]
     Active Substance: LYSINE
     Indication: SYSTEMIC LUPUS ERYTHEMATOSUS
     Dosage: 1000 MG, QD
     Route: 048
  3. IRBESARTAN. [Concomitant]
     Active Substance: IRBESARTAN
     Indication: HYPERTENSION
     Dosage: 75 MG, QD
     Route: 048
  4. LATUDA [Suspect]
     Active Substance: LURASIDONE HYDROCHLORIDE
     Dosage: 60 MG, QD
     Route: 048
  5. OMEPRAZOLE. [Concomitant]
     Active Substance: OMEPRAZOLE
     Indication: ABDOMINAL DISCOMFORT
     Dosage: 20 MG, QD
     Route: 048
  6. LATUDA [Suspect]
     Active Substance: LURASIDONE HYDROCHLORIDE
     Indication: BIPOLAR DISORDER
     Dosage: 80 MG, QD
     Route: 048
  7. CBD OIL [Concomitant]
     Active Substance: CANNABIDIOL\HERBALS
     Indication: PAIN
     Dosage: 0.5 ML, BID
     Route: 048

REACTIONS (2)
  - Wrong technique in product usage process [Unknown]
  - Drug ineffective [Unknown]
